FAERS Safety Report 13925882 (Version 1)
Quarter: 2017Q3

REPORT INFORMATION
  Report Type: Spontaneous
  Country: US (occurrence: US)
  Receive Date: 20170831
  Receipt Date: 20170831
  Transmission Date: 20171127
  Serious: No
  Sender: FDA-Public Use
  Company Number: US-PFIZER INC-2017374007

PATIENT
  Age: 30 Year
  Sex: Female

DRUGS (1)
  1. ADVIL MENSTRUAL PAIN [Suspect]
     Active Substance: IBUPROFEN SODIUM
     Indication: DYSMENORRHOEA
     Dosage: UNK

REACTIONS (1)
  - Drug effect incomplete [Unknown]
